FAERS Safety Report 7007156-5 (Version None)
Quarter: 2010Q3

REPORT INFORMATION
  Report Type: 
  Country: None (occurrence: None)
  Receive Date: 20100913
  Receipt Date: 20100831
  Transmission Date: 20110219
  Serious: Yes (Hospitalization)
  Sender: FDA-Public Use
  Company Number: MPS1-1000367

PATIENT
  Age: 16 Month
  Sex: Male
  Weight: 10 kg

DRUGS (1)
  1. ALDURAZYME [Suspect]
     Indication: MUCOPOLYSACCHARIDOSIS I
     Dosage: 5.8 MG
     Dates: start: 20100610

REACTIONS (9)
  - DEVICE OCCLUSION [None]
  - DEVICE RELATED INFECTION [None]
  - FEELING JITTERY [None]
  - HEART RATE INCREASED [None]
  - INFUSION RELATED REACTION [None]
  - IRRITABILITY [None]
  - PALLOR [None]
  - PYREXIA [None]
  - STAPHYLOCOCCAL INFECTION [None]
